FAERS Safety Report 5119282-6 (Version None)
Quarter: 2006Q4

REPORT INFORMATION
  Report Type: 
  Country: None (occurrence: None)
  Receive Date: 20061002
  Receipt Date: 20061002
  Transmission Date: 20070319
  Serious: No
  Sender: FDA-Public Use
  Company Number: None

PATIENT

DRUGS (4)
  1. OXYCODONE HCL [Suspect]
  2. OXYTOCIN [Suspect]
     Dosage: INJECTABLE
  3. MACROBID [Suspect]
     Dosage: CAPSULE
  4. ZITHROMAX [Suspect]

REACTIONS (1)
  - MEDICATION ERROR [None]
